FAERS Safety Report 5491585-5 (Version None)
Quarter: 2007Q4

REPORT INFORMATION
  Report Type: 
  Country: None (occurrence: None)
  Receive Date: 20071018
  Receipt Date: 20071018
  Transmission Date: 20080405
  Serious: Yes (Hospitalization)
  Sender: FDA-Public Use
  Company Number: None

PATIENT
  Sex: Male
  Weight: 44.5 kg

DRUGS (12)
  1. TACROLIMUS [Suspect]
     Indication: PROPHYLAXIS AGAINST TRANSPLANT REJECTION
     Dosage: 1 MG PO Q12H
     Route: 048
     Dates: start: 20070602, end: 20070607
  2. MORPHINE [Concomitant]
  3. OXYCODONE HCL [Concomitant]
  4. ACETYLCYSTEINE [Concomitant]
  5. FUROSEMIDE [Concomitant]
  6. SIMETHICONE [Concomitant]
  7. KETOROLAC TROMETHAMINE [Concomitant]
  8. ENTECAVIR [Concomitant]
  9. LACTULOSE [Concomitant]
  10. VORICONAZOLE [Concomitant]
  11. VERAPAMIL [Concomitant]
  12. SODIUM POLYSTYRENE SULFATE [Concomitant]

REACTIONS (4)
  - DRUG LEVEL INCREASED [None]
  - PNEUMONIA FUNGAL [None]
  - TREMOR [None]
  - VISION BLURRED [None]
